FAERS Safety Report 6550513-1 (Version None)
Quarter: 2010Q1

REPORT INFORMATION
  Report Type: 
  Country: None (occurrence: None)
  Receive Date: 20100125
  Receipt Date: 20100118
  Transmission Date: 20100710
  Serious: No
  Sender: FDA-Public Use
  Company Number: B0619250A

PATIENT
  Sex: Male

DRUGS (4)
  1. AVOLVE [Suspect]
     Indication: BENIGN PROSTATIC HYPERPLASIA
     Dosage: .5MG PER DAY
     Route: 048
     Dates: start: 20091105, end: 20091130
  2. HARNAL [Suspect]
     Indication: BENIGN PROSTATIC HYPERPLASIA
     Dosage: .2MG PER DAY
     Route: 048
     Dates: start: 20080101
  3. EVIPROSTAT [Suspect]
     Indication: BENIGN PROSTATIC HYPERPLASIA
     Route: 048
     Dates: start: 20090401
  4. ZYRTEC [Concomitant]
     Indication: PSORIASIS
     Dosage: 10MG PER DAY
     Route: 048
     Dates: start: 20090701

REACTIONS (1)
  - URINARY RETENTION [None]
